FAERS Safety Report 20099741 (Version 1)
Quarter: 2021Q4

REPORT INFORMATION
  Report Type: Spontaneous
  Country: US (occurrence: US)
  Receive Date: 20211123
  Receipt Date: 20211123
  Transmission Date: 20220303
  Serious: Yes (Other)
  Sender: FDA-Public Use
  Company Number: US-SUN PHARMACEUTICAL INDUSTRIES LTD-2021R1-318414

PATIENT
  Sex: Male

DRUGS (1)
  1. CALCITRIOL [Suspect]
     Active Substance: CALCITRIOL
     Indication: Product used for unknown indication
     Dosage: 210000 IU INTERNATIONAL UNIT(S), DAILY
     Route: 065

REACTIONS (2)
  - Hypervitaminosis D [Unknown]
  - Renal tubular necrosis [Not Recovered/Not Resolved]
